FAERS Safety Report 7787612-2 (Version None)
Quarter: 2011Q3

REPORT INFORMATION
  Report Type: 
  Country: None (occurrence: None)
  Receive Date: 20110929
  Receipt Date: 20101001
  Transmission Date: 20111222
  Serious: Yes (Hospitalization)
  Sender: FDA-Public Use
  Company Number: US-BAYER-201035803NA

PATIENT
  Age: 27 Year
  Sex: Female
  Weight: 81.633 kg

DRUGS (6)
  1. ZYRTEC [Concomitant]
     Indication: MULTIPLE ALLERGIES
  2. ALLEGRA [Concomitant]
     Indication: MULTIPLE ALLERGIES
  3. IBUPROFEN [Concomitant]
     Indication: HEADACHE
  4. TYLENOL-500 [Concomitant]
     Indication: HEADACHE
  5. YASMIN [Suspect]
     Indication: CONTRACEPTION
     Dosage: UNK
     Dates: start: 20060401, end: 20070601
  6. ONE-A-DAY [VIT C,B12,D2,B3,B6,RETINOL,B2,B1 MONONITR] [Concomitant]

REACTIONS (3)
  - CEREBROVASCULAR ACCIDENT [None]
  - INJURY [None]
  - SUBARACHNOID HAEMORRHAGE [None]
